FAERS Safety Report 4352357-8 (Version None)
Quarter: 2004Q2

REPORT INFORMATION
  Report Type: 
  Country: None (occurrence: None)
  Receive Date: 20040427
  Receipt Date: 20030520
  Transmission Date: 20050107
  Serious: Yes (Other)
  Sender: FDA-Public Use
  Company Number: WAES 0305USA02181

PATIENT
  Age: 30 Year
  Sex: Female

DRUGS (2)
  1. SINGULAIR [Suspect]
     Indication: NASAL CONGESTION
     Dosage: 10 MG/DAILY/PO
     Route: 048
     Dates: start: 20030513, end: 20030518
  2. SINGULAIR [Suspect]
     Indication: SEASONAL ALLERGY
     Dosage: 10 MG/DAILY/PO
     Route: 048
     Dates: start: 20030513, end: 20030518

REACTIONS (1)
  - SINUSITIS [None]
